FAERS Safety Report 5272615-2 (Version None)
Quarter: 2007Q1

REPORT INFORMATION
  Report Type: 
  Country: None (occurrence: None)
  Receive Date: 20070322
  Receipt Date: 20070314
  Transmission Date: 20070707
  Serious: Yes (Life-Threatening, Hospitalization)
  Sender: FDA-Public Use
  Company Number: US-ROCHE-487387

PATIENT
  Age: 54 Year
  Sex: Male

DRUGS (1)
  1. PEGASYS [Suspect]
     Indication: DRUG USE FOR UNKNOWN INDICATION
     Route: 065
     Dates: start: 20061222, end: 20070205

REACTIONS (5)
  - COLITIS [None]
  - ENTEROCOLITIS [None]
  - GASTRITIS [None]
  - GASTROINTESTINAL DISORDER [None]
  - PSORIASIS [None]
